FAERS Safety Report 14861778 (Version 1)
Quarter: 2018Q2

REPORT INFORMATION
  Report Type: Spontaneous
  Country: US (occurrence: US)
  Receive Date: 20180508
  Receipt Date: 20180508
  Transmission Date: 20180711
  Serious: No
  Sender: FDA-Public Use
  Company Number: US-VIFOR (INTERNATIONAL) INC.-VIT-2018-00672

PATIENT
  Sex: Male

DRUGS (15)
  1. CRANBERRY. [Concomitant]
     Active Substance: CRANBERRY
  2. FOLBEE [Concomitant]
     Active Substance: CYANOCOBALAMIN\FOLIC ACID\PYRIDOXINE HYDROCHLORIDE
  3. VELTASSA [Suspect]
     Active Substance: PATIROMER
     Indication: HYPERKALAEMIA
     Route: 048
     Dates: start: 20170302
  4. CALCIUM [Concomitant]
     Active Substance: CALCIUM
  5. FISH OIL [Concomitant]
     Active Substance: FISH OIL
  6. SAW PALMETTO [Concomitant]
     Active Substance: HERBALS\SAW PALMETTO
  7. AMLODIPINE BESILATE [Concomitant]
     Active Substance: AMLODIPINE BESYLATE
  8. CINNAMON. [Concomitant]
     Active Substance: CINNAMON
  9. SODIUM BICARBONATE. [Concomitant]
     Active Substance: SODIUM BICARBONATE
  10. AVODART [Concomitant]
     Active Substance: DUTASTERIDE
  11. FLAXSEED [Concomitant]
     Active Substance: FLAX SEED
  12. ASPIR-81 [Concomitant]
     Active Substance: ASPIRIN
  13. CETIRIZINE HYDROCHLORIDE. [Concomitant]
     Active Substance: CETIRIZINE HYDROCHLORIDE
  14. ASCORBIC ACID. [Concomitant]
     Active Substance: ASCORBIC ACID
  15. OMEPRAZOLE. [Concomitant]
     Active Substance: OMEPRAZOLE

REACTIONS (1)
  - Constipation [Unknown]
